FAERS Safety Report 8376982-2 (Version None)
Quarter: 2012Q2

REPORT INFORMATION
  Report Type: 
  Country: None (occurrence: None)
  Receive Date: 20120522
  Receipt Date: 20120514
  Transmission Date: 20120825
  Serious: Yes (Other)
  Sender: FDA-Public Use
  Company Number: FR-ROCHE-1070144

PATIENT
  Age: 78 Year
  Sex: Female

DRUGS (3)
  1. LUCENTIS [Suspect]
     Indication: AGE-RELATED MACULAR DEGENERATION
     Route: 050
     Dates: start: 20120101
  2. LUCENTIS [Suspect]
     Route: 050
     Dates: start: 20120216
  3. LUCENTIS [Suspect]
     Route: 050
     Dates: start: 20120330

REACTIONS (1)
  - MACULAR FIBROSIS [None]
